FAERS Safety Report 9014956 (Version 1)
Quarter: 2013Q1

REPORT INFORMATION
  Report Type: Spontaneous
  Country: US (occurrence: US)
  Receive Date: 20130116
  Receipt Date: 20130116
  Transmission Date: 20140127
  Serious: No
  Sender: FDA-Public Use
  Company Number: US-BIOGENIDEC-2013BI002840

PATIENT
  Age: 52 None
  Sex: Female

DRUGS (2)
  1. TYSABRI [Suspect]
     Indication: MULTIPLE SCLEROSIS
     Route: 042
     Dates: start: 20111208
  2. AVONEX [Concomitant]
     Indication: MULTIPLE SCLEROSIS
     Route: 030
     Dates: start: 19960701

REACTIONS (12)
  - Hemiparesis [Recovered/Resolved]
  - Pallor [Recovered/Resolved]
  - Balance disorder [Not Recovered/Not Resolved]
  - Gait disturbance [Not Recovered/Not Resolved]
  - Fall [Recovered/Resolved]
  - Rib fracture [Not Recovered/Not Resolved]
  - Contusion [Recovered/Resolved]
  - Excoriation [Recovered/Resolved]
  - Anxiety [Recovered/Resolved]
  - Pain [Unknown]
  - Pruritus [Recovered/Resolved]
  - Musculoskeletal chest pain [Not Recovered/Not Resolved]
